FAERS Safety Report 25752509 (Version 2)
Quarter: 2025Q3

REPORT INFORMATION
  Report Type: Spontaneous
  Country: US (occurrence: US)
  Receive Date: 20250902
  Receipt Date: 20250902
  Transmission Date: 20251021
  Serious: No
  Sender: SANDOZ
  Company Number: US-SANDOZ-SDZ2025US061688

PATIENT
  Sex: Female

DRUGS (1)
  1. ESTRADIOL [Suspect]
     Active Substance: ESTRADIOL
     Indication: Product used for unknown indication
     Route: 062

REACTIONS (6)
  - Symptom recurrence [Unknown]
  - Night sweats [Unknown]
  - Drug ineffective [Unknown]
  - Product use complaint [Unknown]
  - Product substitution issue [Unknown]
  - Product adhesion issue [Unknown]
